FAERS Safety Report 26098649 (Version 1)
Quarter: 2025Q4

REPORT INFORMATION
  Report Type: Spontaneous
  Country: EU (occurrence: EU)
  Receive Date: 20251127
  Receipt Date: 20251127
  Transmission Date: 20260118
  Serious: Yes (Hospitalization)
  Sender: BRISTOL-MYERS SQUIBB COMPANY
  Company Number: None

PATIENT
  Age: 56 Year
  Sex: Male
  Weight: 96 kg

DRUGS (3)
  1. NIVOLUMAB [Suspect]
     Active Substance: NIVOLUMAB
     Indication: Clear cell renal cell carcinoma
     Dosage: 300 MG PER 3 WEEKS FOR 4 DOSES, THEN 480 MG PER 4 WEEKS
     Route: 042
     Dates: start: 20240507
  2. NIVOLUMAB [Suspect]
     Active Substance: NIVOLUMAB
     Dosage: 300 MG PER 3 WEEKS FOR 4 DOSES, THEN 480 MG PER 4 WEEKS
     Route: 042
     Dates: end: 20250105
  3. IPILIMUMAB [Suspect]
     Active Substance: IPILIMUMAB
     Indication: Clear cell renal cell carcinoma
     Dosage: 1 MG/KG EVERY 3 WEEKS FOR 4 DOSES. THE PATIENT RECEIVED 96 MG PER DOSE
     Dates: start: 20240507

REACTIONS (2)
  - Hypercalcaemia [Recovered/Resolved]
  - Sarcoid-like reaction [Recovered/Resolved]
